FAERS Safety Report 6998983-9 (Version None)
Quarter: 2010Q3

REPORT INFORMATION
  Report Type: 
  Country: None (occurrence: None)
  Receive Date: 20100920
  Receipt Date: 20091130
  Transmission Date: 20110219
  Serious: Yes (Other)
  Sender: FDA-Public Use
  Company Number: US-ASTRAZENECA-2009SE29840

PATIENT
  Sex: Male

DRUGS (19)
  1. SEROQUEL [Suspect]
     Route: 048
  2. ZOLOFT [Suspect]
  3. TRAZODONE HCL [Suspect]
     Route: 065
  4. DOXEPIN HCL [Suspect]
     Route: 065
  5. MIRTAZAPINE [Suspect]
     Route: 065
  6. PRISTIQ [Suspect]
     Indication: DEPRESSION
     Route: 048
     Dates: start: 20090316
  7. EFFEXOR XR [Suspect]
     Indication: DEPRESSION
     Route: 048
     Dates: start: 19930101
  8. WELLBUTRIN [Suspect]
     Route: 065
  9. ZYPREXA [Suspect]
     Route: 065
  10. LEXAPRO [Suspect]
  11. PAROXETINE HCL [Suspect]
  12. CYMBALTA [Suspect]
  13. PAXIL [Suspect]
  14. PROZAC [Suspect]
  15. DEPAKOTE [Suspect]
     Route: 065
  16. VITAMINS [Concomitant]
  17. FISH OIL [Concomitant]
  18. IMODIUM [Concomitant]
     Indication: DIARRHOEA
  19. KAOPECTATE [Concomitant]
     Indication: DIARRHOEA

REACTIONS (12)
  - AGEUSIA [None]
  - CONSTIPATION [None]
  - DECREASED APPETITE [None]
  - DIARRHOEA [None]
  - DRUG EFFECT DECREASED [None]
  - DRUG INEFFECTIVE [None]
  - DRY MOUTH [None]
  - DYSKINESIA [None]
  - MUSCLE TWITCHING [None]
  - NIGHTMARE [None]
  - SUICIDE ATTEMPT [None]
  - TREMOR [None]
